FAERS Safety Report 4578544-1 (Version None)
Quarter: 2005Q1

REPORT INFORMATION
  Report Type: 
  Country: None (occurrence: None)
  Receive Date: 20050207
  Receipt Date: 20050207
  Transmission Date: 20050727
  Serious: Yes (Hospitalization)
  Sender: FDA-Public Use
  Company Number: None

PATIENT
  Age: 57 Year
  Sex: Male
  Weight: 87.5442 kg

DRUGS (6)
  1. GEMCITABINE [Suspect]
     Indication: PANCREATIC CARCINOMA
     Dosage: 2100 MG WEEKLY IV I
     Route: 042
     Dates: start: 20041221
  2. GEMCITABINE [Suspect]
     Indication: PANCREATIC CARCINOMA
     Dosage: 2100 MG WEEKLY IV I
     Route: 042
     Dates: start: 20041228
  3. GEMCITABINE [Suspect]
     Indication: PANCREATIC CARCINOMA
     Dosage: 2100 MG WEEKLY IV I
     Route: 042
     Dates: start: 20050105
  4. GEMCITABINE [Suspect]
     Indication: PANCREATIC CARCINOMA
     Dosage: 2100 MG WEEKLY IV I
     Route: 042
     Dates: start: 20050112
  5. GEMCITABINE [Suspect]
     Indication: PANCREATIC CARCINOMA
     Dosage: 2100 MG WEEKLY IV I
     Route: 042
     Dates: start: 20050120
  6. GEMCITABINE [Suspect]
     Indication: PANCREATIC CARCINOMA
     Dosage: 2100 MG WEEKLY IV I
     Route: 042
     Dates: start: 20050127

REACTIONS (5)
  - BODY TEMPERATURE INCREASED [None]
  - DYSPNOEA [None]
  - MALAISE [None]
  - OEDEMA PERIPHERAL [None]
  - OXYGEN SATURATION DECREASED [None]
